FAERS Safety Report 9788682 (Version 2)
Quarter: 2014Q1

REPORT INFORMATION
  Report Type: Report from Study
  Country: JP (occurrence: JP)
  Receive Date: 20131230
  Receipt Date: 20140218
  Transmission Date: 20141002
  Serious: Yes (Hospitalization, Other)
  Sender: FDA-Public Use
  Company Number: JP-TAKEDA-2013TJP004288

PATIENT
  Age: 79 Year
  Sex: Male

DRUGS (8)
  1. LANSOPRAZOLE [Suspect]
     Indication: PROPHYLAXIS AGAINST GASTROINTESTINAL ULCER
     Dosage: 15 MG, QD
     Route: 048
     Dates: start: 20120602, end: 20130708
  2. PEON [Concomitant]
     Indication: OSTEOARTHRITIS
     Dosage: 240 MG, 1 DAYS
     Route: 048
     Dates: start: 20120602
  3. PLAVIX [Concomitant]
     Dosage: 75 MG, 1 DAYS
     Route: 048
     Dates: start: 200004
  4. TANATRIL [Concomitant]
     Dosage: 10 MG, 1 DAYS
     Route: 048
     Dates: start: 200004
  5. MEMARY [Concomitant]
     Indication: DEMENTIA ALZHEIMER^S TYPE
     Dosage: 20 MG, 1 DAYS
     Route: 048
     Dates: start: 20130326
  6. MICARDIS [Concomitant]
     Dosage: 40 MG, 1 DAYS
     Route: 048
     Dates: start: 200004
  7. AIDEITO [Concomitant]
     Dosage: 300 MG, 1 DAYS
     Route: 048
     Dates: start: 200004
  8. CLARITIN                           /00917501/ [Concomitant]
     Indication: RHINITIS ALLERGIC
     Dosage: 10 MG,1 DAYS
     Route: 048
     Dates: start: 20130420

REACTIONS (3)
  - Cardiac failure [Recovering/Resolving]
  - Atrial fibrillation [Recovering/Resolving]
  - Myocardial ischaemia [Recovering/Resolving]
